FAERS Safety Report 6457367-2 (Version None)
Quarter: 2009Q4

REPORT INFORMATION
  Report Type: 
  Country: None (occurrence: None)
  Receive Date: 20091125
  Receipt Date: 20091118
  Transmission Date: 20100525
  Serious: Yes (Death)
  Sender: FDA-Public Use
  Company Number: CZ-ABBOTT-09P-217-0609351-00

PATIENT
  Sex: Male
  Weight: 84 kg

DRUGS (1)
  1. GOPTEN [Suspect]
     Indication: HYPERTENSION
     Route: 048
     Dates: start: 20080425

REACTIONS (2)
  - ONCOLOGIC COMPLICATION [None]
  - POST PROCEDURAL COMPLICATION [None]
